FAERS Safety Report 6882032-7 (Version None)
Quarter: 2010Q3

REPORT INFORMATION
  Report Type: 
  Country: None (occurrence: None)
  Receive Date: 20100727
  Receipt Date: 20100715
  Transmission Date: 20110219
  Serious: Yes (Hospitalization)
  Sender: FDA-Public Use
  Company Number: 2010SP037515

PATIENT
  Age: 55 Year
  Sex: Male

DRUGS (7)
  1. BOCEPREVIR [Suspect]
     Indication: HEPATITIS C
     Dosage: 800 MG;TID; PO
     Route: 048
     Dates: start: 20100413, end: 20100628
  2. RIBAVIRIN [Suspect]
     Indication: HEPATITIS C
     Dosage: 700 MG; BID; PO
     Route: 048
     Dates: start: 20100316, end: 20100628
  3. PEG-INTRON [Suspect]
     Indication: HEPATITIS C
     Dosage: 150 MCG; QW; SC
     Route: 058
     Dates: start: 20100316, end: 20100624
  4. METFORMIN HCL [Suspect]
     Indication: DIABETES MELLITUS
     Dosage: 5OO MG; PO
     Route: 048
     Dates: start: 20090301, end: 20100628
  5. INSULIN [Suspect]
     Indication: DIABETES MELLITUS
     Dosage: ; SC
     Route: 058
     Dates: start: 20090301, end: 20100628
  6. DIOVAN [Suspect]
     Indication: HYPERTENSION
     Dosage: 2.5 MG; PO
     Route: 048
     Dates: start: 20091001, end: 20100628
  7. ASPIRIN [Concomitant]

REACTIONS (4)
  - ANAEMIA [None]
  - HYPOGLYCAEMIA [None]
  - HYPOTENSION [None]
  - SYNCOPE [None]
